FAERS Safety Report 8276250-3 (Version None)
Quarter: 2012Q2

REPORT INFORMATION
  Report Type: 
  Country: None (occurrence: None)
  Receive Date: 20120412
  Receipt Date: 20120402
  Transmission Date: 20120825
  Serious: Yes (Other)
  Sender: FDA-Public Use
  Company Number: PHHY2012DE030626

PATIENT
  Sex: Male

DRUGS (10)
  1. CANDESARTAN CILEXETIL/HYDROCHLOROTHIAZIDE [Concomitant]
     Indication: HYPERTENSION
     Dosage: 16 MG, UNK
     Route: 048
     Dates: start: 20090301
  2. MAGNESIUM VERLA TABLET [Concomitant]
     Indication: MUSCLE SPASMS
     Dosage: 90 MG, 3X2
     Route: 048
     Dates: start: 20100101
  3. ERGENYL CHRONO [Concomitant]
     Indication: SCHIZOAFFECTIVE DISORDER
     Dosage: 1000 MG, BID
     Route: 048
     Dates: start: 20080101
  4. ALLOPURINOL [Concomitant]
     Indication: HYPERURICAEMIA
     Dosage: 100 MG, QD
     Route: 048
     Dates: start: 20080501
  5. MEDYN [Concomitant]
     Indication: DIABETES MELLITUS
     Dosage: 8 MG, TID
     Route: 048
     Dates: start: 20100101
  6. GILENYA [Suspect]
     Indication: MULTIPLE SCLEROSIS
     Dosage: 0.5 MG, QD
     Route: 048
     Dates: start: 20111123, end: 20120126
  7. METFORMIN HCL [Concomitant]
     Indication: DIABETES MELLITUS
     Dosage: 2000 MG, BID
     Route: 048
     Dates: start: 20100201
  8. CITALOPRAM [Concomitant]
     Indication: DEPRESSION
     Dosage: 30 MG, QD
     Route: 048
     Dates: start: 20070501
  9. LEVOTHYROXINE SODIUM [Concomitant]
     Indication: HYPOTHYROIDISM
     Dosage: 150 UG, QD
     Dates: start: 20060801
  10. TESTOSTERONE [Concomitant]
     Indication: HYPOGONADISM
     Dosage: 1000 MG, EVERY 12 WEEKS
     Route: 030
     Dates: start: 20110601

REACTIONS (2)
  - MYDRIASIS [None]
  - DEPRESSION SUICIDAL [None]
